FAERS Safety Report 21779524 (Version 1)
Quarter: 2022Q4

REPORT INFORMATION
  Report Type: Report from Study
  Country: US (occurrence: US)
  Receive Date: 20221226
  Receipt Date: 20221226
  Transmission Date: 20230113
  Serious: No
  Sender: FDA-Public Use
  Company Number: US-ABBVIE-22K-163-4536987-00

PATIENT
  Sex: Female

DRUGS (2)
  1. HUMIRA [Suspect]
     Active Substance: ADALIMUMAB
     Indication: Psoriatic arthropathy
     Dosage: THE ONSET DATE FOR ADVERSE EVENTS LACK OF DRUG EFFECT AND GENERAL SYMPTOMS WAS 2022 BUT DUE TO SY...
     Route: 058
     Dates: start: 202208
  2. HUMIRA [Suspect]
     Active Substance: ADALIMUMAB
     Indication: Psoriasis

REACTIONS (3)
  - General symptom [Unknown]
  - Injection site discomfort [Recovered/Resolved with Sequelae]
  - Drug ineffective [Not Recovered/Not Resolved]
